FAERS Safety Report 8713477 (Version 3)
Quarter: 2012Q4

REPORT INFORMATION
  Report Type: 
  Country: SE (occurrence: SE)
  Receive Date: 20120808
  Receipt Date: 20121211
  Transmission Date: 20130627
  Serious: Yes (Other)
  Sender: FDA-Public Use
  Company Number: SE-AMGEN-SWESP2012048860

PATIENT
  Age: 14 Year
  Sex: Male

DRUGS (5)
  1. NEUPOGEN [Suspect]
     Indication: INFANTILE GENETIC AGRANULOCYTOSIS
     Dosage: 20 mug/kg, qd
     Route: 058
     Dates: end: 20061212
  2. BUSULPHAN [Concomitant]
     Dosage: 16 mg/kg, UNK
  3. CYCLOPHOSPHAMIDE [Concomitant]
     Dosage: 120 mg/kg, UNK
  4. MELPHALAN [Concomitant]
     Dosage: 140 mg/m2, UNK
  5. KONAKION [Concomitant]
     Indication: VITAMIN K
     Dosage: UNK
     Dates: start: 20061213

REACTIONS (3)
  - Myelodysplastic syndrome [Unknown]
  - Acute myeloid leukaemia [Unknown]
  - Graft versus host disease [Unknown]
